FAERS Safety Report 5594260-1 (Version None)
Quarter: 2007Q4

REPORT INFORMATION
  Report Type: 
  Country: None (occurrence: None)
  Receive Date: 20071218
  Receipt Date: 20070320
  Transmission Date: 20080405
  Serious: Yes (Hospitalization, Other)
  Sender: FDA-Public Use
  Company Number: 2007001918

PATIENT
  Age: 51 Year
  Sex: Male
  Weight: 90.7 kg

DRUGS (3)
  1. BEXTRA [Suspect]
     Indication: BACK PAIN
     Dosage: 10 MG (10 MG,1 IN 1 D)
     Dates: start: 20030101
  2. BEXTRA [Suspect]
     Indication: INTERVERTEBRAL DISC PROTRUSION
     Dosage: 10 MG (10 MG,1 IN 1 D)
     Dates: start: 20030101
  3. BEXTRA [Suspect]
     Indication: OSTEOARTHRITIS
     Dosage: 10 MG (10 MG,1 IN 1 D)
     Dates: start: 20030101

REACTIONS (4)
  - CONDITION AGGRAVATED [None]
  - HYPERTENSION [None]
  - MYOCARDIAL INFARCTION [None]
  - PAIN [None]
